FAERS Safety Report 17613057 (Version 1)
Quarter: 2020Q2

REPORT INFORMATION
  Report Type: Other
  Country: GB (occurrence: GB)
  Receive Date: 20200401
  Receipt Date: 20200401
  Transmission Date: 20200713
  Serious: Yes (Disabling)
  Sender: FDA-Public Use
  Company Number: GB-COLLEGIUM PHARMACEUTICAL, INC.-GB-2020COL000307

PATIENT
  Age: 52 Year
  Sex: Female
  Weight: 75 kg

DRUGS (2)
  1. TAPENTADOL [Suspect]
     Active Substance: TAPENTADOL
     Indication: PAIN
     Dosage: 200 MG, QD
     Route: 048
     Dates: start: 20200115
  2. CAPECITABINE. [Concomitant]
     Active Substance: CAPECITABINE
     Indication: BREAST CANCER
     Dosage: UNK
     Dates: start: 2018

REACTIONS (4)
  - Pruritus [Recovered/Resolved]
  - Hypersensitivity [Unknown]
  - Rash [Recovered/Resolved]
  - Blister [Recovered/Resolved]

NARRATIVE: CASE EVENT DATE: 20200208
